FAERS Safety Report 8362319-1 (Version None)
Quarter: 2012Q2

REPORT INFORMATION
  Report Type: 
  Country: None (occurrence: None)
  Receive Date: 20120515
  Receipt Date: 20120514
  Transmission Date: 20120825
  Serious: Yes (Life-Threatening, Hospitalization)
  Sender: FDA-Public Use
  Company Number: US-AMGEN-USASP2012029988

PATIENT
  Age: 47 Year
  Sex: Female
  Weight: 78.5 kg

DRUGS (6)
  1. CYCLOPHOSPHAMIDE [Concomitant]
     Dosage: UNK UNK, Q2WK
     Dates: start: 20110801, end: 20111201
  2. DOXORUBICIN HCL [Suspect]
     Indication: BREAST CANCER
     Dosage: 60 MG/M2, Q2WK
     Route: 042
     Dates: start: 20110812, end: 20111201
  3. CARBOPLATIN [Concomitant]
     Dosage: UNK UNK, Q3WK
     Dates: start: 20110801, end: 20111201
  4. PACLITAXEL [Concomitant]
     Dosage: UNK UNK, Q4MO
     Dates: start: 20110801, end: 20111201
  5. PEGFILGRASTIM [Suspect]
     Indication: BREAST CANCER
     Dosage: 6 MG, UNK
     Dates: start: 20110812
  6. BEVACIZUMAB [Suspect]
     Indication: BREAST CANCER
     Dosage: 10 MG/KG, PER CHEMO REGIM
     Route: 042
     Dates: start: 20110812, end: 20111201

REACTIONS (1)
  - METASTASES TO CENTRAL NERVOUS SYSTEM [None]
